FAERS Safety Report 24412010 (Version 1)
Quarter: 2024Q4

REPORT INFORMATION
  Report Type: Spontaneous
  Country: IT (occurrence: IT)
  Receive Date: 20241008
  Receipt Date: 20241008
  Transmission Date: 20250115
  Serious: Yes (Hospitalization, Other)
  Sender: GILEAD
  Company Number: None

PATIENT
  Age: 69 Year
  Sex: Male

DRUGS (1)
  1. ODEFSEY [Suspect]
     Active Substance: EMTRICITABINE\RILPIVIRINE HYDROCHLORIDE\TENOFOVIR ALAFENAMIDE FUMARATE
     Indication: Product used for unknown indication
     Dosage: ODESFEY 200/25/25 MG 1 CP/DIE
     Route: 048

REACTIONS (1)
  - Pancreatitis acute [Recovered/Resolved with Sequelae]

NARRATIVE: CASE EVENT DATE: 20240908
